FAERS Safety Report 7401999-1 (Version None)
Quarter: 2011Q2

REPORT INFORMATION
  Report Type: 
  Country: None (occurrence: None)
  Receive Date: 20110408
  Receipt Date: 20110405
  Transmission Date: 20111010
  Serious: Yes (Other)
  Sender: FDA-Public Use
  Company Number: JP-PFIZER INC-2011068840

PATIENT
  Age: 58 Year
  Sex: Male
  Weight: 60 kg

DRUGS (7)
  1. CADUET [Suspect]
     Indication: HYPERLIPIDAEMIA
     Dosage: ONCE DAILY
     Route: 048
     Dates: start: 20110128, end: 20110310
  2. LASIX [Concomitant]
     Indication: CARDIAC FAILURE
     Dosage: 20 MG, 1X/DAY
     Route: 048
     Dates: start: 20101109
  3. ARTIST [Concomitant]
     Indication: CARDIAC FAILURE
     Dosage: 2.5 MG, 1X/DAY
     Route: 048
     Dates: start: 20101109
  4. ALDACTONE [Concomitant]
     Indication: CARDIAC FAILURE
     Dosage: 25 MG, 1X/DAY
     Route: 048
     Dates: start: 20101109
  5. WARFARIN [Concomitant]
     Indication: ATRIAL FIBRILLATION
     Dosage: 3 MG, 1X/DAY
     Route: 048
     Dates: start: 20101109
  6. NORVASC [Concomitant]
     Indication: HYPERTENSION
     Dosage: 5 MG, 1X/DAY
     Route: 048
     Dates: start: 20101228
  7. TELMISARTAN AND HYDROCHLOROTHIAZIDE [Suspect]
     Indication: HYPERTENSION
     Dosage: 1 DF, 1X/DAY
     Route: 048
     Dates: start: 20101207, end: 20110310

REACTIONS (2)
  - GENERALISED OEDEMA [None]
  - DERMATITIS EXFOLIATIVE [None]
